FAERS Safety Report 12708445 (Version 4)
Quarter: 2016Q4

REPORT INFORMATION
  Report Type: Spontaneous
  Country: CA (occurrence: CA)
  Receive Date: 20160901
  Receipt Date: 20161028
  Transmission Date: 20170207
  Serious: Yes (Hospitalization, Other)
  Sender: FDA-Public Use
  Company Number: CA-GLAXOSMITHKLINE-CA2016GSK124969

PATIENT
  Sex: Female

DRUGS (3)
  1. NUCALA [Suspect]
     Active Substance: MEPOLIZUMAB
     Indication: ASTHMA
     Dosage: 100 MG, Z
     Route: 058
     Dates: start: 20160901
  2. ADVAIR HFA [Suspect]
     Active Substance: FLUTICASONE PROPIONATE\SALMETEROL XINAFOATE
     Indication: ASTHMA
  3. VENTOLIN [Suspect]
     Active Substance: ALBUTEROL SULFATE
     Indication: ASTHMA

REACTIONS (11)
  - Dyspnoea [Unknown]
  - Back pain [Unknown]
  - Condition aggravated [Unknown]
  - Contusion [Unknown]
  - Pneumonia [Unknown]
  - Aphonia [Unknown]
  - Cough [Unknown]
  - Infection [Unknown]
  - Wheezing [Unknown]
  - Haematemesis [Unknown]
  - Dysphonia [Unknown]
